FAERS Safety Report 4646167-1 (Version None)
Quarter: 2005Q2

REPORT INFORMATION
  Report Type: 
  Country: None (occurrence: None)
  Receive Date: 20050422
  Receipt Date: 20050422
  Transmission Date: 20051028
  Serious: Yes (Other)
  Sender: FDA-Public Use
  Company Number: None

PATIENT
  Age: 83 Year
  Sex: Male
  Weight: 82.9 kg

DRUGS (17)
  1. AZITHROMYCIN [Suspect]
  2. IRBESARTAN [Concomitant]
  3. ALBUTEROL SO4 [Concomitant]
  4. IPRATROPIUM BROMIDE [Concomitant]
  5. PRIMIDONE [Concomitant]
  6. TERAZOSIN HCL [Concomitant]
  7. PROPRANOLOL HYDROCHLORIDE [Concomitant]
  8. TERAZOSIN [Concomitant]
  9. NYSTATIN [Concomitant]
  10. DOCUSATE SODIUM [Concomitant]
  11. NITROGLYCERIN [Concomitant]
  12. IPRATROPIUM BROMIDE [Concomitant]
  13. IRBESARTAN [Concomitant]
  14. ASPIRIN [Concomitant]
  15. ACETAMINOPHEN [Concomitant]
  16. METHYLPREDNISOLONE SOD SUCC [Concomitant]
  17. GATIFLOXACIN [Concomitant]

REACTIONS (1)
  - URTICARIA [None]
